FAERS Safety Report 8890171 (Version 1)
Quarter: 2012Q4

REPORT INFORMATION
  Report Type: Spontaneous
  Country: US (occurrence: None)
  Receive Date: 20121105
  Receipt Date: 20121105
  Transmission Date: 20130627
  Serious: Yes (Hospitalization, Disabling)
  Sender: FDA-Public Use
  Company Number: None

PATIENT
  Age: 46 Year
  Sex: Male
  Weight: 86.18 kg

DRUGS (1)
  1. CIPRO [Suspect]
     Indication: POSTOPERATIVE INFECTION
     Dosage: unknown   10 days
     Dates: start: 20060705, end: 20060715

REACTIONS (10)
  - Cow^s milk intolerance [None]
  - Coeliac disease [None]
  - Oesophageal spasm [None]
  - Inflammatory bowel disease [None]
  - Joint dislocation [None]
  - Arthritis [None]
  - Pneumothorax [None]
  - Pneumonia [None]
  - Tendon disorder [None]
  - Tendonitis [None]
